FAERS Safety Report 7493155-6 (Version None)
Quarter: 2011Q2

REPORT INFORMATION
  Report Type: 
  Country: None (occurrence: None)
  Receive Date: 20110520
  Receipt Date: 20110511
  Transmission Date: 20111010
  Serious: Yes (Other)
  Sender: FDA-Public Use
  Company Number: NL-AMGEN-NLDSP2011025728

PATIENT
  Age: 68 Year
  Sex: Female

DRUGS (5)
  1. ENBREL [Suspect]
     Indication: RHEUMATOID ARTHRITIS
     Dosage: 50 MG, WEEKLY; STARTED MORE THAN 4 YEARS AGO
     Dates: end: 20090101
  2. PANTOZOL                           /01263202/ [Concomitant]
     Dosage: UNK
  3. TENORETIC [Concomitant]
     Dosage: UNK
  4. VITAMIN B [Concomitant]
     Dosage: UNK
  5. NAPROXEN [Concomitant]
     Dosage: UNK

REACTIONS (1)
  - BREAST CANCER FEMALE [None]
